FAERS Safety Report 5816214-X (Version None)
Quarter: 2008Q3

REPORT INFORMATION
  Report Type: 
  Country: None (occurrence: None)
  Receive Date: 20080721
  Receipt Date: 20080717
  Transmission Date: 20090109
  Serious: Yes (Life-Threatening, Hospitalization)
  Sender: FDA-Public Use
  Company Number: B0529634A

PATIENT
  Age: 42 Year
  Sex: Male

DRUGS (8)
  1. CLAMOXYL IV [Suspect]
     Indication: DRUG USE FOR UNKNOWN INDICATION
     Route: 042
     Dates: start: 20080529, end: 20080529
  2. ULTIVA [Suspect]
     Route: 042
     Dates: start: 20080529, end: 20080529
  3. ACETAMINOPHEN [Suspect]
     Indication: DRUG USE FOR UNKNOWN INDICATION
     Route: 042
     Dates: start: 20080529, end: 20080529
  4. ACUPAN [Suspect]
     Indication: DRUG USE FOR UNKNOWN INDICATION
     Route: 042
     Dates: start: 20080529, end: 20080529
  5. PROFENID [Suspect]
     Indication: DRUG USE FOR UNKNOWN INDICATION
     Route: 042
     Dates: start: 20080529, end: 20080529
  6. PROPOFOL [Suspect]
     Dosage: 200MG PER DAY
     Route: 042
     Dates: start: 20080529, end: 20080529
  7. SEVORANE [Suspect]
     Route: 055
     Dates: start: 20080529, end: 20080529
  8. MIDAZOLAM HCL [Suspect]
     Route: 042
     Dates: start: 20080529, end: 20080529

REACTIONS (3)
  - ANAPHYLACTIC SHOCK [None]
  - BLOOD PRESSURE DECREASED [None]
  - GENERALISED ERYTHEMA [None]
